FAERS Safety Report 14101579 (Version 1)
Quarter: 2017Q4

REPORT INFORMATION
  Report Type: Spontaneous
  Country: US (occurrence: US)
  Receive Date: 20171017
  Receipt Date: 20171017
  Transmission Date: 20180321
  Serious: Yes (Disabling, Other)
  Sender: FDA-Public Use
  Company Number: None

PATIENT
  Age: 57 Year
  Sex: Female
  Weight: 48.15 kg

DRUGS (13)
  1. VERAPAMIL XL [Concomitant]
  2. RELPAX [Concomitant]
     Active Substance: ELETRIPTAN HYDROBROMIDE
  3. DEXTROAMPHET SACCHARAT, AMPHET ASPARTATE, DEXTROAMPHET SULFATE AND AMPHET SULFAT [Suspect]
     Active Substance: AMPHETAMINE ASPARTATE\AMPHETAMINE SULFATE\DEXTROAMPHETAMINE SACCHARATE\DEXTROAMPHETAMINE SULFATE
     Indication: SOMNOLENCE
     Dosage: ?          QUANTITY:1 TABLET(S);?
     Route: 048
     Dates: start: 20170926, end: 20171017
  4. VIT. B-2 [Concomitant]
  5. DEXTROAMPHET SACCHARAT, AMPHET ASPARTATE, DEXTROAMPHET SULFATE AND AMPHET SULFAT [Suspect]
     Active Substance: AMPHETAMINE ASPARTATE\AMPHETAMINE SULFATE\DEXTROAMPHETAMINE SACCHARATE\DEXTROAMPHETAMINE SULFATE
     Indication: SLEEP APNOEA SYNDROME
     Dosage: ?          QUANTITY:1 TABLET(S);?
     Route: 048
     Dates: start: 20170926, end: 20171017
  6. TOPAMAX [Concomitant]
     Active Substance: TOPIRAMATE
  7. ZOMIG [Concomitant]
     Active Substance: ZOLMITRIPTAN
  8. VIT. D [Concomitant]
  9. COQ10 [Concomitant]
     Active Substance: UBIDECARENONE
  10. ADDERALL [Concomitant]
     Active Substance: AMPHETAMINE ASPARTATE\AMPHETAMINE SULFATE\DEXTROAMPHETAMINE SACCHARATE\DEXTROAMPHETAMINE SULFATE
  11. WELLBUTRIN XL [Concomitant]
     Active Substance: BUPROPION HYDROCHLORIDE
  12. MINIVELLE [Concomitant]
     Active Substance: ESTRADIOL
  13. VIT. B-12 [Concomitant]

REACTIONS (6)
  - Product substitution issue [None]
  - Vomiting [None]
  - Drug effect decreased [None]
  - Nausea [None]
  - Migraine [None]
  - Sleep apnoea syndrome [None]

NARRATIVE: CASE EVENT DATE: 20170926
